FAERS Safety Report 5668832-X (Version None)
Quarter: 2008Q1

REPORT INFORMATION
  Report Type: 
  Country: None (occurrence: None)
  Receive Date: 20080317
  Receipt Date: 20080226
  Transmission Date: 20080703
  Serious: No
  Sender: FDA-Public Use
  Company Number: US-BAYER-200815224NA

PATIENT
  Age: 32 Year
  Sex: Female
  Weight: 91 kg

DRUGS (1)
  1. ULTRAVIST (PHARMACY BULK) [Suspect]
     Indication: COMPUTERISED TOMOGRAM
     Route: 042
     Dates: start: 20080208, end: 20080208

REACTIONS (4)
  - EYELID OEDEMA [None]
  - GENERALISED ERYTHEMA [None]
  - HYPOAESTHESIA FACIAL [None]
  - PRURITUS [None]
